FAERS Safety Report 4782441-6 (Version None)
Quarter: 2005Q3

REPORT INFORMATION
  Report Type: 
  Country: None (occurrence: None)
  Receive Date: 20050929
  Receipt Date: 20041022
  Transmission Date: 20060218
  Serious: No
  Sender: FDA-Public Use
  Company Number: US-GLAXOSMITHKLINE-A0530892A

PATIENT
  Age: 62 Year
  Sex: Female

DRUGS (3)
  1. COREG [Suspect]
     Dosage: 75MG THREE TIMES PER DAY
     Route: 048
     Dates: start: 20040422
  2. ATACAND [Concomitant]
  3. DILTIAZEM [Concomitant]

REACTIONS (3)
  - OEDEMA [None]
  - OVERDOSE [None]
  - WEIGHT INCREASED [None]
